FAERS Safety Report 7478747-2 (Version None)
Quarter: 2011Q2

REPORT INFORMATION
  Report Type: 
  Country: None (occurrence: None)
  Receive Date: 20110513
  Receipt Date: 20110406
  Transmission Date: 20111010
  Serious: Yes (Hospitalization, Other)
  Sender: FDA-Public Use
  Company Number: US-BAYER-2010-004362

PATIENT
  Age: 20 Year
  Sex: Female
  Weight: 65.76 kg

DRUGS (2)
  1. MOTRIN [Concomitant]
     Indication: COSTOCHONDRITIS
  2. YAZ [Suspect]
     Indication: CONTRACEPTION
     Dosage: UNK
     Route: 048
     Dates: start: 20081001, end: 20081201

REACTIONS (4)
  - GALLBLADDER DISORDER [None]
  - CHOLECYSTITIS CHRONIC [None]
  - CHOLECYSTITIS ACUTE [None]
  - PAIN [None]
